FAERS Safety Report 20945113 (Version 1)
Quarter: 2022Q2

REPORT INFORMATION
  Report Type: Spontaneous
  Country: DE (occurrence: None)
  Receive Date: 20220610
  Receipt Date: 20220610
  Transmission Date: 20220720
  Serious: Yes (Other)
  Sender: FDA-Public Use
  Company Number: 2022A203506

PATIENT
  Sex: Female

DRUGS (1)
  1. SYMBICORT [Suspect]
     Active Substance: BUDESONIDE\FORMOTEROL FUMARATE DIHYDRATE
     Dosage: 160/4,5 UNKNOWN
     Route: 055

REACTIONS (10)
  - Bronchospasm [Unknown]
  - Panic attack [Unknown]
  - Gait disturbance [Unknown]
  - Asthenia [Unknown]
  - Condition aggravated [Unknown]
  - Dyspnoea [Unknown]
  - Cardiovascular disorder [Unknown]
  - Discomfort [Unknown]
  - Incorrect dose administered by device [Unknown]
  - Device delivery system issue [Unknown]
